FAERS Safety Report 8758511 (Version 2)
Quarter: 2013Q4

REPORT INFORMATION
  Report Type: Spontaneous
  Country: US (occurrence: US)
  Receive Date: 20120829
  Receipt Date: 20131031
  Transmission Date: 20140711
  Serious: Yes (Other)
  Sender: FDA-Public Use
  Company Number: US-009507513-1208USA007823

PATIENT
  Age: 55 Year
  Sex: Female

DRUGS (2)
  1. NASONEX [Suspect]
     Indication: HYPERSENSITIVITY
     Dosage: ONE SPRAY IN EACH NOSTRIL, BID
     Route: 045
     Dates: start: 2004
  2. BENADRYL [Concomitant]

REACTIONS (8)
  - Vaginal cancer [Recovering/Resolving]
  - Eyelid disorder [Recovering/Resolving]
  - Sinusitis [Recovering/Resolving]
  - Eye haemorrhage [Recovering/Resolving]
  - Eye pain [Recovering/Resolving]
  - Visual impairment [Recovering/Resolving]
  - Drug interaction [Recovering/Resolving]
  - Underdose [Unknown]
